FAERS Safety Report 8512605-7 (Version None)
Quarter: 2012Q3

REPORT INFORMATION
  Report Type: 
  Country: None (occurrence: None)
  Receive Date: 20120716
  Receipt Date: 20120711
  Transmission Date: 20120928
  Serious: Yes (Other)
  Sender: FDA-Public Use
  Company Number: BG-ASTRAZENECA-2012SE48044

PATIENT
  Age: 50 Year
  Sex: Male

DRUGS (1)
  1. VIMOVO [Suspect]
     Indication: OSTEOARTHRITIS
     Route: 048
     Dates: start: 20120101

REACTIONS (2)
  - NAUSEA [None]
  - VERTIGO [None]
